FAERS Safety Report 6361158-0 (Version None)
Quarter: 2009Q3

REPORT INFORMATION
  Report Type: 
  Country: None (occurrence: None)
  Receive Date: 20090918
  Receipt Date: 20090909
  Transmission Date: 20100115
  Serious: Yes (Hospitalization)
  Sender: FDA-Public Use
  Company Number: BE-ABBOTT-09P-013-0595791-00

PATIENT
  Sex: Female

DRUGS (2)
  1. HUMIRA [Suspect]
     Indication: RHEUMATOID ARTHRITIS
     Route: 058
     Dates: start: 20051201, end: 20090710
  2. MEDROL [Concomitant]
     Indication: ARTHRITIS

REACTIONS (3)
  - DIASTOLIC DYSFUNCTION [None]
  - DYSPNOEA [None]
  - INTERSTITIAL LUNG DISEASE [None]
